FAERS Safety Report 12716757 (Version 1)
Quarter: 2016Q3

REPORT INFORMATION
  Report Type: Spontaneous
  Country: US (occurrence: US)
  Receive Date: 20160906
  Receipt Date: 20160906
  Transmission Date: 20161109
  Serious: No
  Sender: FDA-Public Use
  Company Number: US-BAUSCH-BL-2015-022093

PATIENT
  Sex: Female
  Weight: 72.64 kg

DRUGS (2)
  1. DORZOLAMIDE HYDROCHLORIDE AND TIMOLOL MALEATE [Suspect]
     Active Substance: DORZOLAMIDE HYDROCHLORIDE\TIMOLOL MALEATE
     Indication: INTRAOCULAR PRESSURE INCREASED
     Dosage: 1 DROP EVERY 12 HOURS
     Route: 047
  2. TRAVATAN Z [Concomitant]
     Active Substance: TRAVOPROST
     Indication: INTRAOCULAR PRESSURE INCREASED
     Dosage: 1 DROP IN EACH EYE AT BEDTIME
     Route: 047

REACTIONS (6)
  - Vision blurred [Not Recovered/Not Resolved]
  - Eyelid skin dryness [Not Recovered/Not Resolved]
  - Eyelids pruritus [Not Recovered/Not Resolved]
  - Lacrimation increased [Not Recovered/Not Resolved]
  - Eye pruritus [Not Recovered/Not Resolved]
  - Eyelid oedema [Unknown]

NARRATIVE: CASE EVENT DATE: 2015
